FAERS Safety Report 12325393 (Version 1)
Quarter: 2016Q2

REPORT INFORMATION
  Report Type: Spontaneous
  Country: PE (occurrence: PE)
  Receive Date: 20160502
  Receipt Date: 20160502
  Transmission Date: 20160815
  Serious: Yes (Hospitalization)
  Sender: FDA-Public Use
  Company Number: PE-NOVOPROD-488252

PATIENT
  Sex: Female
  Weight: 3 kg

DRUGS (2)
  1. LEVEMIR [Suspect]
     Active Substance: INSULIN DETEMIR
     Indication: TYPE 2 DIABETES MELLITUS
     Dosage: 6 IU, QD
     Route: 064
     Dates: start: 20151230, end: 20160204
  2. EUTIROX [Concomitant]
     Active Substance: LEVOTHYROXINE SODIUM
     Indication: HYPOTHYROIDISM
     Dosage: 1 TAB, QD
     Route: 064
     Dates: start: 201504, end: 20160204

REACTIONS (4)
  - Foetal exposure during pregnancy [Recovered/Resolved]
  - Premature baby [Unknown]
  - Hypoglycaemia neonatal [Recovered/Resolved]
  - Viral infection [Recovered/Resolved]

NARRATIVE: CASE EVENT DATE: 20151230
